FAERS Safety Report 14852725 (Version 2)
Quarter: 2018Q2

REPORT INFORMATION
  Report Type: Spontaneous
  Country: US (occurrence: MX)
  Receive Date: 20180507
  Receipt Date: 20180515
  Transmission Date: 20180711
  Serious: Yes (Other)
  Sender: FDA-Public Use
  Company Number: US-SUNOVION-2018SUN001784

PATIENT
  Sex: Male
  Weight: 90 kg

DRUGS (10)
  1. GLYCERIN. [Concomitant]
     Active Substance: GLYCERIN
     Dosage: UNK
     Dates: start: 201606
  2. ELANTAN [Concomitant]
     Active Substance: ISOSORBIDE MONONITRATE
     Dosage: UNK
     Dates: start: 2014
  3. EFIENT [Concomitant]
     Active Substance: PRASUGREL HYDROCHLORIDE
     Dosage: UNK
     Dates: start: 2016
  4. PANTOZOL [Concomitant]
     Active Substance: PANTOPRAZOLE SODIUM
     Dosage: UNK
  5. INDACATEROL AND GLYCOPYRROLATE [Suspect]
     Active Substance: GLYCOPYRROLATE\INDACATEROL MALEATE
     Indication: PULMONARY VEIN OCCLUSION
     Dosage: 1 DF, QD
     Route: 055
     Dates: start: 2016
  6. RELVAR [Concomitant]
     Active Substance: FLUTICASONE FUROATE\VILANTEROL TRIFENATATE
     Dosage: UNK
     Dates: start: 2016
  7. ASPIRIN PROTECT [Concomitant]
     Active Substance: ASPIRIN
     Dosage: UNK
     Dates: start: 201601
  8. LIPITOR [Concomitant]
     Active Substance: ATORVASTATIN CALCIUM
     Dosage: UNK
     Dates: start: 2012
  9. TEMERIT [Concomitant]
     Active Substance: NEBIVOLOL
     Dosage: UNK
     Dates: start: 2014
  10. TYLEX [Concomitant]
     Active Substance: ACETAMINOPHEN\CODEINE PHOSPHATE
     Dosage: UNK

REACTIONS (4)
  - Cardiac disorder [Unknown]
  - Headache [Unknown]
  - Dizziness [Unknown]
  - Vertigo [Unknown]
